FAERS Safety Report 6193048-0 (Version None)
Quarter: 2009Q2

REPORT INFORMATION
  Report Type: 
  Country: None (occurrence: None)
  Receive Date: 20090518
  Receipt Date: 20090514
  Transmission Date: 20091009
  Serious: Yes (Other)
  Sender: FDA-Public Use
  Company Number: TW-BAYER-200920403GPV

PATIENT
  Age: 75 Year
  Sex: Male

DRUGS (1)
  1. MAGNEVIST [Suspect]
     Indication: NUCLEAR MAGNETIC RESONANCE IMAGING
     Route: 042
     Dates: start: 20090507, end: 20090507

REACTIONS (4)
  - APHASIA [None]
  - BLOOD PRESSURE DECREASED [None]
  - OESOPHAGEAL OEDEMA [None]
  - OXYGEN SATURATION DECREASED [None]
